FAERS Safety Report 10181571 (Version 1)
Quarter: 2014Q2

REPORT INFORMATION
  Report Type: Spontaneous
  Country: BE (occurrence: BE)
  Receive Date: 20140519
  Receipt Date: 20140519
  Transmission Date: 20141212
  Serious: Yes (Hospitalization)
  Sender: FDA-Public Use
  Company Number: BE-GLAXOSMITHKLINE-B0988713A

PATIENT
  Age: 81 Year
  Sex: Male
  Weight: 59 kg

DRUGS (3)
  1. VOTRIENT [Suspect]
     Indication: RENAL CELL CARCINOMA
     Dosage: 800MG PER DAY
     Route: 065
     Dates: start: 20140225, end: 20140414
  2. TERAZOSINE [Concomitant]
     Indication: BENIGN PROSTATIC HYPERPLASIA
     Dosage: 5MG PER DAY
     Route: 048
  3. PARACETAMOL [Concomitant]
     Indication: PAIN
     Dosage: 1G PER DAY
     Dates: start: 20140324

REACTIONS (7)
  - Hepatotoxicity [Recovering/Resolving]
  - Decreased appetite [Unknown]
  - Fatigue [Unknown]
  - Vertigo [Unknown]
  - Jaundice [Unknown]
  - Abdominal pain [Unknown]
  - Abdominal pain upper [Unknown]
